FAERS Safety Report 5922125-1 (Version None)
Quarter: 2008Q3

REPORT INFORMATION
  Report Type: 
  Country: None (occurrence: None)
  Receive Date: 20080909
  Receipt Date: 20080610
  Transmission Date: 20090109
  Serious: Yes (Hospitalization, Other)
  Sender: FDA-Public Use
  Company Number: 163-20785-08060597 (0)

PATIENT
  Age: 51 Year
  Sex: Male

DRUGS (9)
  1. THALOMID [Suspect]
     Indication: MULTIPLE MYELOMA
     Dosage: 100 MG, 1 IN 1 D, ORAL : 200 MG, 1 IN 1 D, ORAL
     Route: 048
     Dates: start: 20080502, end: 20080501
  2. THALOMID [Suspect]
     Indication: MULTIPLE MYELOMA
     Dosage: 100 MG, 1 IN 1 D, ORAL : 200 MG, 1 IN 1 D, ORAL
     Route: 048
     Dates: start: 20080529
  3. NEXIUM [Concomitant]
  4. RENAGEL [Concomitant]
  5. DEXAMETHASONE TAB [Concomitant]
  6. METOPROLOL TARTRATE [Concomitant]
  7. CALCITONIN (CALCITONIN) [Concomitant]
  8. COLACE (DOCUSATE SODIUM) [Concomitant]
  9. FERROUS SULFATE TAB [Concomitant]

REACTIONS (2)
  - HYPERTENSION [None]
  - RENAL FAILURE [None]
